FAERS Safety Report 20552734 (Version 1)
Quarter: 2022Q1

REPORT INFORMATION
  Report Type: Spontaneous
  Country: CA (occurrence: CA)
  Receive Date: 20220304
  Receipt Date: 20220304
  Transmission Date: 20220423
  Serious: Yes (Hospitalization)
  Sender: FDA-Public Use
  Company Number: None

PATIENT
  Age: 62 Year
  Sex: Female

DRUGS (14)
  1. ETOPOSIDE [Suspect]
     Active Substance: ETOPOSIDE
     Indication: Product used for unknown indication
     Route: 042
  2. CARBOPLATIN [Suspect]
     Active Substance: CARBOPLATIN
     Indication: Product used for unknown indication
     Route: 042
  3. ALLOPURINOL [Concomitant]
     Active Substance: ALLOPURINOL
  4. ATACAND [Concomitant]
     Active Substance: CANDESARTAN CILEXETIL
  5. FOLIC ACID [Concomitant]
     Active Substance: FOLIC ACID
  6. HYDROMORPHONE [Concomitant]
     Active Substance: HYDROMORPHONE
  7. HYDROMORPHONE [Concomitant]
     Active Substance: HYDROMORPHONE
  8. VITAMINS [Concomitant]
     Active Substance: VITAMINS
  9. OMEGA 3 [Concomitant]
     Active Substance: CAPSAICIN
  10. ROSUVASTATIN [Concomitant]
     Active Substance: ROSUVASTATIN
     Route: 058
  11. SYMBICORT [Concomitant]
     Active Substance: BUDESONIDE\FORMOTEROL FUMARATE DIHYDRATE
     Dosage: 200/6
  12. VENTOLIN [Concomitant]
     Active Substance: ALBUTEROL SULFATE
  13. VITAMIN D [Concomitant]
     Active Substance: VITAMIN D NOS
  14. METFORMIN [Concomitant]
     Active Substance: METFORMIN HYDROCHLORIDE

REACTIONS (1)
  - Febrile neutropenia [Unknown]
